FAERS Safety Report 20901345 (Version 1)
Quarter: 2022Q2

REPORT INFORMATION
  Report Type: Spontaneous
  Country: US (occurrence: US)
  Receive Date: 20220601
  Receipt Date: 20220601
  Transmission Date: 20220721
  Serious: No
  Sender: FDA-Public Use
  Company Number: US-PFIZER INC-202200771744

PATIENT
  Age: 51 Year
  Sex: Female
  Weight: 62.6 kg

DRUGS (1)
  1. PAXLOVID [Suspect]
     Active Substance: NIRMATRELVIR\RITONAVIR
     Indication: COVID-19 treatment
     Dosage: 300MG NIRMATRELVIR/ 100MG RITONAVIR- 3 TABLETS TWICE A DAY
     Route: 048
     Dates: start: 20220526

REACTIONS (3)
  - Dysgeusia [Unknown]
  - Oral discomfort [Unknown]
  - Illness [Unknown]

NARRATIVE: CASE EVENT DATE: 20220526
